FAERS Safety Report 18840894 (Version 1)
Quarter: 2021Q1

REPORT INFORMATION
  Report Type: Spontaneous
  Country: US (occurrence: US)
  Receive Date: 20210203
  Receipt Date: 20210203
  Transmission Date: 20210419
  Serious: No
  Sender: FDA-Public Use
  Company Number: US-BRISTOL-MYERS SQUIBB COMPANY-BMS-2021-006824

PATIENT
  Sex: Female
  Weight: 47 kg

DRUGS (3)
  1. KENALOG?10 [Suspect]
     Active Substance: TRIAMCINOLONE ACETONIDE
     Dosage: 40 MG/ML, ONCE
     Route: 014
     Dates: start: 20191224, end: 20191224
  2. TRIAMCINOLONE [Concomitant]
     Active Substance: TRIAMCINOLONE
     Indication: PRODUCT USED FOR UNKNOWN INDICATION
     Dosage: UNK
     Route: 065
  3. KENALOG?10 [Suspect]
     Active Substance: TRIAMCINOLONE ACETONIDE
     Indication: JUVENILE IDIOPATHIC ARTHRITIS
     Dosage: 55 MG/1.4 ML, ONCE
     Route: 014
     Dates: start: 20191224, end: 20191224

REACTIONS (2)
  - Pain [Unknown]
  - Injection site induration [Unknown]
